FAERS Safety Report 4269984-9 (Version None)
Quarter: 2004Q1

REPORT INFORMATION
  Report Type: 
  Country: None (occurrence: None)
  Receive Date: 20040113
  Receipt Date: 20040113
  Transmission Date: 20041129
  Serious: Yes (Hospitalization)
  Sender: FDA-Public Use
  Company Number: None

PATIENT
  Age: 62 Year
  Sex: Male

DRUGS (15)
  1. TERAZOSIN HCL [Suspect]
     Indication: BENIGN PROSTATIC HYPERPLASIA
     Dosage: 10 MG QHS
     Dates: start: 20000101
  2. LEVOFLOXACIN [Concomitant]
  3. QUETIAPINE [Concomitant]
  4. SERTRALINE HCL [Concomitant]
  5. ALLOPURINOL [Concomitant]
  6. BACLOFEN [Concomitant]
  7. COLCHICINE [Concomitant]
  8. DIGOXIN [Concomitant]
  9. ACIPHEX [Concomitant]
  10. SPIRONOLACTONE [Concomitant]
  11. FELODIPINE [Concomitant]
  12. FOSINOPRIL SODIUM [Concomitant]
  13. INSULIN [Concomitant]
  14. METFORMIN HCL [Concomitant]
  15. OXYBUTNIN [Concomitant]

REACTIONS (1)
  - HYPOTENSION [None]
